FAERS Safety Report 5853248-3 (Version None)
Quarter: 2008Q3

REPORT INFORMATION
  Report Type: 
  Country: None (occurrence: None)
  Receive Date: 20080820
  Receipt Date: 20080812
  Transmission Date: 20090109
  Serious: Yes (Hospitalization, Disabling, Other)
  Sender: FDA-Public Use
  Company Number: 19912

PATIENT
  Age: 47 Year
  Sex: Male

DRUGS (8)
  1. VINCRISTINE [Suspect]
     Indication: MULTIPLE MYELOMA
     Dates: start: 20040101
  2. DOXORUBICIN HCL [Suspect]
     Indication: MULTIPLE MYELOMA
     Dates: start: 20040101
  3. DAUNORUBICIN HCL [Suspect]
     Indication: MULTIPLE MYELOMA
  4. DEXAMETHASONE TAB [Suspect]
     Indication: MULTIPLE MYELOMA
     Dates: start: 20040101
  5. CYCLOPHOSPHAMIDE [Suspect]
     Indication: MULTIPLE MYELOMA
  6. THALIDOMIDE [Suspect]
     Indication: MULTIPLE MYELOMA
  7. MELPHALAN [Suspect]
     Indication: MULTIPLE MYELOMA
     Dosage: 200 MG/M2 FREQ UNK UNK
  8. NEUPOGEN [Concomitant]

REACTIONS (4)
  - DEMYELINATING POLYNEUROPATHY [None]
  - GENERAL PHYSICAL HEALTH DETERIORATION [None]
  - GUILLAIN-BARRE SYNDROME [None]
  - STEM CELL TRANSPLANT [None]
